FAERS Safety Report 15925172 (Version 1)
Quarter: 2019Q1

REPORT INFORMATION
  Report Type: Report from Study
  Country: PH (occurrence: PH)
  Receive Date: 20190206
  Receipt Date: 20190206
  Transmission Date: 20190417
  Serious: Yes (Hospitalization, Other)
  Sender: FDA-Public Use
  Company Number: PH-ROCHE-2253627

PATIENT
  Age: 70 Year
  Sex: Male

DRUGS (1)
  1. TECENTRIQ [Suspect]
     Active Substance: ATEZOLIZUMAB
     Indication: PRODUCT USED FOR UNKNOWN INDICATION
     Route: 042

REACTIONS (13)
  - Gastritis [Unknown]
  - Hepatic failure [Unknown]
  - Liver disorder [Unknown]
  - Myocarditis [Unknown]
  - Pneumonitis [Unknown]
  - Cardiogenic shock [Unknown]
  - Hypotension [Unknown]
  - Hepatitis [Unknown]
  - Supraventricular tachycardia [Recovered/Resolved]
  - Bronchitis [Unknown]
  - White blood cell count increased [Unknown]
  - Palpitations [Unknown]
  - Fibrin D dimer increased [Recovering/Resolving]

NARRATIVE: CASE EVENT DATE: 20190111
